FAERS Safety Report 16194192 (Version 1)
Quarter: 2019Q2

REPORT INFORMATION
  Report Type: Spontaneous
  Country: US (occurrence: US)
  Receive Date: 20190414
  Receipt Date: 20190414
  Transmission Date: 20190711
  Serious: Yes (Other)
  Sender: FDA-Public Use
  Company Number: US-JNJFOC-20190403193

PATIENT
  Sex: Male

DRUGS (4)
  1. XARELTO [Suspect]
     Active Substance: RIVAROXABAN
     Indication: CEREBROVASCULAR ACCIDENT PROPHYLAXIS
     Route: 048
     Dates: start: 20180501, end: 20180710
  2. XARELTO [Suspect]
     Active Substance: RIVAROXABAN
     Indication: RETINAL ARTERY OCCLUSION
     Route: 048
     Dates: start: 20180501, end: 20180710
  3. XARELTO [Suspect]
     Active Substance: RIVAROXABAN
     Indication: ATRIAL FIBRILLATION
     Route: 048
     Dates: start: 20180501, end: 20180710
  4. XARELTO [Suspect]
     Active Substance: RIVAROXABAN
     Indication: TEMPORAL ARTERITIS
     Route: 048
     Dates: start: 20180501, end: 20180710

REACTIONS (1)
  - Gastrointestinal haemorrhage [Unknown]

NARRATIVE: CASE EVENT DATE: 20180710
